FAERS Safety Report 8765635 (Version 2)
Quarter: 2012Q4

REPORT INFORMATION
  Report Type: 
  Country: DE (occurrence: DE)
  Receive Date: 20120902
  Receipt Date: 20120906
  Transmission Date: 20130627
  Serious: Yes (Other)
  Sender: FDA-Public Use
  Company Number: PHHY2012DE075485

PATIENT
  Age: 87 Year
  Sex: Female

DRUGS (8)
  1. ZOMETA [Suspect]
     Indication: HYPERPARATHYROIDISM PRIMARY
     Dosage: 4 mg
     Route: 042
     Dates: start: 20081215, end: 20101112
  2. ZOMETA [Suspect]
     Dosage: 4 mg
     Route: 042
     Dates: start: 20120525, end: 20120727
  3. BONDRONAT [Concomitant]
     Indication: HYPERPARATHYROIDISM PRIMARY
     Dosage: 6 mg, per day
     Dates: start: 20101210, end: 20120427
  4. LETROZOLE [Concomitant]
     Indication: BREAST CANCER FEMALE
     Dosage: 2.5 mg, per day
     Route: 048
     Dates: start: 20120120
  5. NOVAMINSULFON [Concomitant]
     Indication: PAIN
     Dosage: 90 gtt, per day
     Route: 048
     Dates: start: 20081215
  6. NOVAMINSULFON [Concomitant]
     Dosage: 83610 gtt, per day
     Route: 048
     Dates: start: 20081215
  7. NOVAMINSULFON [Concomitant]
     Dosage: 30 gtt, per day
     Route: 048
     Dates: start: 20081215
  8. ANTIBIOTICS [Concomitant]

REACTIONS (1)
  - Osteonecrosis of jaw [Not Recovered/Not Resolved]
